FAERS Safety Report 23889718 (Version 1)
Quarter: 2024Q2

REPORT INFORMATION
  Report Type: Spontaneous
  Country: US (occurrence: None)
  Receive Date: 20240523
  Receipt Date: 20240523
  Transmission Date: 20240716
  Serious: Yes (Other)
  Sender: FDA-Public Use
  Company Number: None

PATIENT
  Age: 73 Year
  Sex: Female

DRUGS (7)
  1. SINGULAIR [Suspect]
     Active Substance: MONTELUKAST SODIUM
     Indication: Dyspnoea
     Dosage: 1 TABLET 1 X DAILY MOUTH
     Route: 048
     Dates: start: 202404, end: 202404
  2. SINGULAIR [Suspect]
     Active Substance: MONTELUKAST SODIUM
     Indication: Cough
  3. LETROZOLE [Concomitant]
     Active Substance: LETROZOLE
  4. POTASSIUM [Concomitant]
     Active Substance: POTASSIUM
  5. ASPIRIN [Concomitant]
     Active Substance: ASPIRIN
  6. vit. d3 [Concomitant]
  7. CALCIUM [Concomitant]
     Active Substance: CALCIUM

REACTIONS (7)
  - Tremor [None]
  - Headache [None]
  - Cough [None]
  - Agitation [None]
  - Rash [None]
  - Hallucination, tactile [None]
  - Dysphonia [None]

NARRATIVE: CASE EVENT DATE: 20240401
